FAERS Safety Report 8362299-9 (Version None)
Quarter: 2012Q2

REPORT INFORMATION
  Report Type: 
  Country: None (occurrence: None)
  Receive Date: 20120515
  Receipt Date: 20120507
  Transmission Date: 20120825
  Serious: Yes (Hospitalization, Other)
  Sender: FDA-Public Use
  Company Number: US-ELI_LILLY_AND_COMPANY-US201205002606

PATIENT
  Sex: Female

DRUGS (3)
  1. CHEMOTHERAPEUTICS [Concomitant]
     Indication: BREAST CANCER
     Dosage: UNK
     Dates: start: 20110901
  2. FORTEO [Suspect]
     Indication: OSTEOPOROSIS
     Dosage: 20 UG, QD
     Dates: start: 20110501
  3. FORTEO [Suspect]
     Dosage: 20 UG, QD
     Dates: start: 20110501

REACTIONS (6)
  - BLINDNESS [None]
  - BLADDER DISORDER [None]
  - INCORRECT STORAGE OF DRUG [None]
  - COGNITIVE DISORDER [None]
  - PNEUMONIA [None]
  - BODY TEMPERATURE INCREASED [None]
